FAERS Safety Report 6726663-3 (Version None)
Quarter: 2010Q2

REPORT INFORMATION
  Report Type: 
  Country: None (occurrence: None)
  Receive Date: 20100514
  Receipt Date: 20100510
  Transmission Date: 20101027
  Serious: Yes (Death)
  Sender: FDA-Public Use
  Company Number: US-AMGEN-QUU411348

PATIENT
  Sex: Female

DRUGS (3)
  1. NPLATE [Suspect]
     Indication: IDIOPATHIC THROMBOCYTOPENIC PURPURA
     Dates: start: 20100501, end: 20100507
  2. CORTICOSTEROIDS [Concomitant]
     Dates: start: 20100430, end: 20100503
  3. IMMU-G [Concomitant]
     Dates: start: 20100430, end: 20100502

REACTIONS (2)
  - BLOOD LACTIC ACID INCREASED [None]
  - HYPOTENSION [None]
